FAERS Safety Report 23534095 (Version 2)
Quarter: 2024Q1

REPORT INFORMATION
  Report Type: Spontaneous
  Country: CA (occurrence: CA)
  Receive Date: 20240216
  Receipt Date: 20240228
  Transmission Date: 20240410
  Serious: No
  Sender: FDA-Public Use
  Company Number: CA-BIOGEN-2024BI01250268

PATIENT
  Age: 80 Year
  Sex: Female

DRUGS (1)
  1. ADUHELM [Suspect]
     Active Substance: ADUCANUMAB-AVWA
     Indication: Cognitive disorder
     Route: 050

REACTIONS (1)
  - Superficial siderosis of central nervous system [Unknown]
